FAERS Safety Report 13876254 (Version 1)
Quarter: 2017Q3

REPORT INFORMATION
  Report Type: Spontaneous
  Country: US (occurrence: US)
  Receive Date: 20170817
  Receipt Date: 20170817
  Transmission Date: 20171127
  Serious: No
  Sender: FDA-Public Use
  Company Number: US-TEVA-797464USA

PATIENT
  Sex: Female

DRUGS (32)
  1. LACTULOSE. [Concomitant]
     Active Substance: LACTULOSE
  2. DEXTROAMPHET SACCHARAT, AMPHET ASPARTATE, DEXTROAMPHET SULFATE AND AMPHET SULFAT [Concomitant]
     Active Substance: AMPHETAMINE ASPARTATE\AMPHETAMINE SULFATE\DEXTROAMPHETAMINE SACCHARATE\DEXTROAMPHETAMINE SULFATE
  3. ERYTHROMYCIN. [Concomitant]
     Active Substance: ERYTHROMYCIN
  4. VYVANSE [Concomitant]
     Active Substance: LISDEXAMFETAMINE DIMESYLATE
  5. COPAXONE [Suspect]
     Active Substance: GLATIRAMER ACETATE
     Indication: MULTIPLE SCLEROSIS
     Dosage: 17.1429 MILLIGRAM/MILLILITERS DAILY;
     Route: 058
     Dates: start: 20150113
  6. TRIAMTERENE/ HCTZ [Concomitant]
  7. SPIRONOLACTONE. [Concomitant]
     Active Substance: SPIRONOLACTONE
  8. METFORMIN [Concomitant]
     Active Substance: METFORMIN HYDROCHLORIDE
  9. ONDANSETRON [Concomitant]
     Active Substance: ONDANSETRON
  10. PREDNISONE. [Concomitant]
     Active Substance: PREDNISONE
  11. FLUCONAZOLE. [Concomitant]
     Active Substance: FLUCONAZOLE
  12. HCTZ [Concomitant]
     Active Substance: HYDROCHLOROTHIAZIDE
  13. LEXAPRO [Concomitant]
     Active Substance: ESCITALOPRAM OXALATE
  14. AMITRIPTYLINE [Concomitant]
     Active Substance: AMITRIPTYLINE
  15. FLUTICASONE. [Concomitant]
     Active Substance: FLUTICASONE
  16. PROPRANOLOL [Concomitant]
     Active Substance: PROPRANOLOL HYDROCHLORIDE
  17. BACLOFEN. [Concomitant]
     Active Substance: BACLOFEN
  18. JOLIVETTE [Concomitant]
     Active Substance: NORETHINDRONE
  19. MODAFINIL. [Concomitant]
     Active Substance: MODAFINIL
  20. GABAPENTIN. [Concomitant]
     Active Substance: GABAPENTIN
  21. CETIRIZINE [Concomitant]
     Active Substance: CETIRIZINE HYDROCHLORIDE
  22. ESCITALOPRAM [Concomitant]
     Active Substance: ESCITALOPRAM OXALATE
  23. KCL [Concomitant]
     Active Substance: POTASSIUM CHLORIDE
  24. COUMADIN [Concomitant]
     Active Substance: WARFARIN SODIUM
  25. DRYSOL [Concomitant]
     Active Substance: ALUMINUM CHLORIDE
  26. AZITHROMYCIN ANHYDROUS. [Concomitant]
     Active Substance: AZITHROMYCIN ANHYDROUS
  27. SUMATRIPTAN. [Concomitant]
     Active Substance: SUMATRIPTAN
  28. PROTONIX [Concomitant]
     Active Substance: PANTOPRAZOLE SODIUM
  29. CYANOCOBALAMIN. [Concomitant]
     Active Substance: CYANOCOBALAMIN
  30. OXYCODONE [Concomitant]
     Active Substance: OXYCODONE
  31. CEPHALEXIN. [Concomitant]
     Active Substance: CEPHALEXIN
  32. METHYLPRED [Concomitant]
     Active Substance: METHYLPREDNISOLONE

REACTIONS (5)
  - Dyspnoea [Unknown]
  - Rash [Not Recovered/Not Resolved]
  - Chest discomfort [Not Recovered/Not Resolved]
  - Blood iron decreased [Not Recovered/Not Resolved]
  - Throat tightness [Unknown]
